FAERS Safety Report 6150931-X (Version None)
Quarter: 2009Q2

REPORT INFORMATION
  Report Type: 
  Country: None (occurrence: None)
  Receive Date: 20090408
  Receipt Date: 20090324
  Transmission Date: 20091009
  Serious: Yes (Life-Threatening)
  Sender: FDA-Public Use
  Company Number: 2009S1005240

PATIENT
  Sex: Male
  Weight: 100 kg

DRUGS (6)
  1. ALLOPURINOL [Suspect]
     Indication: DRUG USE FOR UNKNOWN INDICATION
  2. BISOPROLOL FUMARATE [Concomitant]
  3. CLOPIDOGREL [Concomitant]
  4. CO-AMOXICLAV [Concomitant]
  5. RAMIPRIL [Concomitant]
  6. SIMVASTATIN [Concomitant]

REACTIONS (6)
  - CONTINUOUS HAEMODIAFILTRATION [None]
  - HYPERSENSITIVITY [None]
  - HYPOTENSION [None]
  - LYMPHADENOPATHY [None]
  - RENAL FAILURE [None]
  - SEPSIS [None]
